FAERS Safety Report 4736307-8 (Version None)
Quarter: 2005Q3

REPORT INFORMATION
  Report Type: 
  Country: None (occurrence: None)
  Receive Date: 20050804
  Receipt Date: 20050725
  Transmission Date: 20060218
  Serious: Yes (Hospitalization, Other)
  Sender: FDA-Public Use
  Company Number: 2005087885

PATIENT
  Sex: Female
  Weight: 74.8435 kg

DRUGS (4)
  1. NORVASC [Suspect]
     Indication: HYPERTENSION
     Dosage: 5 MG (5 MG, 1 IN 1 D), ORAL
     Route: 048
  2. GRAPEFRUIT JUICE (CITRUS PARADISI FRUIT JUICE) [Suspect]
     Indication: ILL-DEFINED DISORDER
  3. EYE DROPS FOR ALLERGY (ANTIHISTAMINES FOR TOPICAL USE) [Concomitant]
  4. ASPIRIN [Concomitant]

REACTIONS (3)
  - APPENDICITIS PERFORATED [None]
  - GASTROINTESTINAL GANGRENE [None]
  - PARAESTHESIA [None]
